FAERS Safety Report 24247919 (Version 1)
Quarter: 2024Q3

REPORT INFORMATION
  Report Type: Spontaneous
  Country: US (occurrence: None)
  Receive Date: 20240826
  Receipt Date: 20240826
  Transmission Date: 20241017
  Serious: Yes (Other)
  Sender: INFORLIFE
  Company Number: US-INFO-20240254

PATIENT

DRUGS (1)
  1. NOREPINEPHRINE [Suspect]
     Active Substance: NOREPINEPHRINE\NOREPINEPHRINE BITARTRATE
     Dosage: ()
     Route: 041

REACTIONS (3)
  - Hypotension [Unknown]
  - Product packaging issue [Unknown]
  - Incorrect dose administered [Unknown]
